FAERS Safety Report 18575472 (Version 9)
Quarter: 2021Q4

REPORT INFORMATION
  Report Type: Spontaneous
  Country: BR (occurrence: BR)
  Receive Date: 20201203
  Receipt Date: 20211220
  Transmission Date: 20220303
  Serious: Yes (Other)
  Sender: FDA-Public Use
  Company Number: BR-GLAXOSMITHKLINE-BR2020AMR236297

PATIENT
  Age: 9 Year
  Sex: Male
  Weight: 60.3 kg

DRUGS (14)
  1. NUCALA [Suspect]
     Active Substance: MEPOLIZUMAB
     Indication: Asthma
     Dosage: 100 MG, Z,  (EVERY 4 WEEKS)
     Route: 042
     Dates: start: 20201215
  2. SERETIDE [Suspect]
     Active Substance: FLUTICASONE PROPIONATE\SALMETEROL XINAFOATE
     Indication: Asthma
     Dosage: UNK, TID
     Dates: end: 20201104
  3. ALBUTEROL [Suspect]
     Active Substance: ALBUTEROL
     Indication: Crying
     Dosage: 4 PUFF(S), QID (4 JETS 6/6H)
  4. ALBUTEROL [Suspect]
     Active Substance: ALBUTEROL
     Indication: Asthmatic crisis
  5. SINGULAIR [Suspect]
     Active Substance: MONTELUKAST SODIUM
     Indication: Product used for unknown indication
     Dosage: 5 MG, QD (AT NIGHT)
  6. CEFTRIAXONE SODIUM [Suspect]
     Active Substance: CEFTRIAXONE SODIUM
     Indication: Product used for unknown indication
     Dosage: UNK
     Route: 030
  7. PRELONE [Suspect]
     Active Substance: PREDNISOLONE
     Indication: COVID-19
     Dosage: 1 DF, QD
  8. SYMBICORT [Suspect]
     Active Substance: BUDESONIDE\FORMOTEROL FUMARATE DIHYDRATE
     Indication: Asthma
     Dosage: UNK UNK, TID
     Dates: start: 20201105
  9. SYMBICORT [Suspect]
     Active Substance: BUDESONIDE\FORMOTEROL FUMARATE DIHYDRATE
     Indication: Asthmatic crisis
     Dosage: UNK, TID
     Dates: start: 202111
  10. AZITHROMYCIN [Suspect]
     Active Substance: AZITHROMYCIN
     Indication: Product used for unknown indication
     Dosage: 250 MG, 3 X WEEK
     Dates: start: 201908
  11. AZITHROMYCIN [Suspect]
     Active Substance: AZITHROMYCIN
     Indication: Hypersensitivity
     Dosage: 2 DF, QD
  12. SPIRIVA [Suspect]
     Active Substance: TIOTROPIUM BROMIDE MONOHYDRATE
     Indication: Product used for unknown indication
     Dosage: UNK
     Dates: start: 2018, end: 201910
  13. BUDESONIDE [Concomitant]
     Active Substance: BUDESONIDE
     Indication: Product used for unknown indication
     Dosage: 32 UG, QD
  14. MONTELUKAST [Concomitant]
     Active Substance: MONTELUKAST SODIUM
     Indication: Product used for unknown indication
     Dosage: 5 MG, QD

REACTIONS (23)
  - Apnoea [Unknown]
  - Asthmatic crisis [Recovered/Resolved]
  - Crying [Recovering/Resolving]
  - Sleep disorder [Unknown]
  - Nasal septal operation [Unknown]
  - Polypectomy [Unknown]
  - Tonsillectomy [Unknown]
  - Dyspnoea [Unknown]
  - Oxygen saturation decreased [Recovered/Resolved]
  - Cough [Recovered/Resolved]
  - Wheezing [Unknown]
  - Poor quality sleep [Unknown]
  - Sneezing [Unknown]
  - Hypersensitivity [Recovered/Resolved]
  - Productive cough [Recovered/Resolved]
  - Coronavirus infection [Recovered/Resolved]
  - Somnolence [Recovered/Resolved]
  - Fatigue [Recovered/Resolved]
  - Quarantine [Unknown]
  - Product use issue [Unknown]
  - Intentional product misuse [Unknown]
  - Inappropriate schedule of product administration [Unknown]
  - Product dose omission issue [Unknown]

NARRATIVE: CASE EVENT DATE: 20210530
